FAERS Safety Report 9125246 (Version 1)
Quarter: 2013Q1

REPORT INFORMATION
  Report Type: Spontaneous
  Country: FR (occurrence: FR)
  Receive Date: 20130227
  Receipt Date: 20130227
  Transmission Date: 20140127
  Serious: Yes (Life-Threatening, Hospitalization)
  Sender: FDA-Public Use
  Company Number: PHHY2013FR019059

PATIENT
  Age: 65 Year
  Sex: Male

DRUGS (6)
  1. OSLIF BREEZHALER [Suspect]
     Dates: end: 20121212
  2. XELEVIA [Suspect]
     Indication: TYPE 2 DIABETES MELLITUS
     Dosage: 100 MG, QD
     Route: 048
     Dates: start: 20121201, end: 20121212
  3. COVERAM [Suspect]
     Indication: HYPERTENSION
     Dosage: 1 DF, QD
     Dates: start: 20121201, end: 20121212
  4. STAGID [Suspect]
     Indication: TYPE 2 DIABETES MELLITUS
     Dosage: 2100 MG, QD
     Dates: start: 20121004, end: 20121212
  5. CRESTOR [Suspect]
     Dosage: 5 MG, QD
     Dates: start: 20120104, end: 20121212
  6. SEVIKAR [Suspect]
     Indication: HYPERTENSION
     Dosage: UNK
     Dates: start: 20121004, end: 20121201

REACTIONS (8)
  - Drug-induced liver injury [Not Recovered/Not Resolved]
  - Jaundice [Not Recovered/Not Resolved]
  - Diabetes mellitus inadequate control [Not Recovered/Not Resolved]
  - Polyuria [Not Recovered/Not Resolved]
  - Polydipsia [Not Recovered/Not Resolved]
  - Fatigue [Not Recovered/Not Resolved]
  - Diabetic ketoacidosis [Not Recovered/Not Resolved]
  - Ketonuria [Not Recovered/Not Resolved]
